FAERS Safety Report 13944804 (Version 1)
Quarter: 2017Q3

REPORT INFORMATION
  Report Type: Spontaneous
  Country: US (occurrence: US)
  Receive Date: 20170907
  Receipt Date: 20170907
  Transmission Date: 20171128
  Serious: Yes (Life-Threatening, Hospitalization, Other)
  Sender: FDA-Public Use
  Company Number: US-ORION CORPORATION ORION PHARMA-BUHY2017-0005

PATIENT
  Age: 42 Year
  Sex: Female

DRUGS (5)
  1. DICYCLOMINE [Suspect]
     Active Substance: DICYCLOMINE HYDROCHLORIDE
     Route: 065
  2. D-AMPHETAMINE [Suspect]
     Active Substance: DEXTROAMPHETAMINE
     Route: 065
  3. BUSPIRONE [Suspect]
     Active Substance: BUSPIRONE HYDROCHLORIDE
     Route: 065
  4. ACEPROMAZINE [Suspect]
     Active Substance: ACEPROMAZINE
     Route: 065
  5. OXYCODONE [Suspect]
     Active Substance: OXYCODONE
     Route: 065

REACTIONS (10)
  - Rhabdomyolysis [Recovered/Resolved]
  - Metabolic acidosis [Recovered/Resolved]
  - Overdose [Recovered/Resolved]
  - Hypothermia [Recovered/Resolved]
  - Leukopenia [Recovered/Resolved]
  - Septic shock [Recovered/Resolved]
  - Neuroleptic malignant syndrome [Recovered/Resolved]
  - Acute kidney injury [Recovered/Resolved]
  - Depressed level of consciousness [Recovered/Resolved]
  - Mydriasis [Recovered/Resolved]
